FAERS Safety Report 5164585-2 (Version None)
Quarter: 2006Q4

REPORT INFORMATION
  Report Type: 
  Country: None (occurrence: None)
  Receive Date: 20061124
  Receipt Date: 20061114
  Transmission Date: 20070319
  Serious: Yes (Other)
  Sender: FDA-Public Use
  Company Number: 2006141077

PATIENT
  Sex: Male

DRUGS (2)
  1. GEODON [Suspect]
  2. LEXAPRO [Suspect]
     Dosage: 10 MG (10 MG, 1 IN 1 D)

REACTIONS (2)
  - DRUG INTERACTION [None]
  - SEROTONIN SYNDROME [None]
